FAERS Safety Report 18505459 (Version 5)
Quarter: 2020Q4

REPORT INFORMATION
  Report Type: Other
  Country: CA (occurrence: CA)
  Receive Date: 20201116
  Receipt Date: 20201217
  Transmission Date: 20210114
  Serious: Yes (Other)
  Sender: FDA-Public Use
  Company Number: CA-ROCHE-2583045

PATIENT
  Sex: Male

DRUGS (2)
  1. OCREVUS [Suspect]
     Active Substance: OCRELIZUMAB
     Dosage: 600 MG EVERY 6 MONTH
     Route: 042
  2. OCREVUS [Suspect]
     Active Substance: OCRELIZUMAB
     Indication: PRIMARY PROGRESSIVE MULTIPLE SCLEROSIS
     Dosage: 300 MG AT DAY 0 AND 14, THEN 600 MG EVERY 6 MONTH
     Route: 042
     Dates: start: 20180612

REACTIONS (9)
  - Tooth disorder [Unknown]
  - Balance disorder [Unknown]
  - Dizziness [Unknown]
  - Visual impairment [Unknown]
  - Mobility decreased [Unknown]
  - Gingival recession [Unknown]
  - Gingivitis [Recovered/Resolved]
  - Feeling abnormal [Unknown]
  - Pyrexia [Unknown]
